FAERS Safety Report 8328686-X (Version None)
Quarter: 2012Q2

REPORT INFORMATION
  Report Type: 
  Country: None (occurrence: None)
  Receive Date: 20120502
  Receipt Date: 20100818
  Transmission Date: 20120825
  Serious: No
  Sender: FDA-Public Use
  Company Number: US-TEVA-2010004435

PATIENT
  Sex: Female
  Weight: 54.48 kg

DRUGS (12)
  1. FLOVENT [Suspect]
     Dates: start: 20100812
  2. TOPROL-XL [Concomitant]
     Dosage: 150 MILLIGRAM;
     Dates: start: 20100711, end: 20100817
  3. ACIDOPHILUS [Concomitant]
  4. NUVIGIL [Suspect]
     Indication: NARCOLEPSY
     Route: 048
     Dates: start: 20100812
  5. PREMARIN [Concomitant]
     Dates: start: 19940101
  6. TOPROL-XL [Concomitant]
     Dosage: 50 MILLIGRAM;
  7. ZOFRAN [Concomitant]
     Dates: start: 20080101
  8. VITAMIN A [Concomitant]
     Dates: start: 20100801
  9. COMBIVENT [Concomitant]
  10. TOPROL-XL [Concomitant]
     Dates: start: 20100817
  11. XANAX [Concomitant]
  12. PHENERGAN [Concomitant]
     Dates: start: 20080101

REACTIONS (9)
  - CHEST DISCOMFORT [None]
  - HEADACHE [None]
  - BLOOD PRESSURE DECREASED [None]
  - DIARRHOEA [None]
  - CONSTIPATION [None]
  - PRODUCTIVE COUGH [None]
  - CONFUSIONAL STATE [None]
  - NASAL CONGESTION [None]
  - NAUSEA [None]
